FAERS Safety Report 9124128 (Version 1)
Quarter: 2013Q1

REPORT INFORMATION
  Report Type: Spontaneous
  Country: FI (occurrence: FI)
  Receive Date: 20130116
  Receipt Date: 20130116
  Transmission Date: 20140127
  Serious: Yes (Death, Other)
  Sender: FDA-Public Use
  Company Number: FI-ROCHE-1179960

PATIENT
  Age: 67 Year
  Sex: Male

DRUGS (10)
  1. ROACTEMRA [Suspect]
     Indication: RHEUMATOID ARTHRITIS
     Route: 042
     Dates: start: 20120809, end: 20121127
  2. OXIKLORIN [Concomitant]
     Indication: RHEUMATOID ARTHRITIS
     Route: 048
     Dates: start: 200704
  3. PREDNISOLON [Concomitant]
     Indication: RHEUMATOID ARTHRITIS
     Route: 048
     Dates: start: 200707
  4. TRAMAL RETARD [Concomitant]
     Indication: PAIN
     Route: 048
     Dates: start: 2004
  5. CARDACE [Concomitant]
     Indication: HYPERTENSION
     Route: 048
  6. SIMVASTATIN [Concomitant]
     Indication: HYPERCHOLESTEROLAEMIA
     Route: 048
  7. PRIMASPAN [Concomitant]
     Indication: CEREBROVASCULAR DISORDER
     Route: 048
  8. CYSTRIN [Concomitant]
     Indication: URINARY INCONTINENCE
     Route: 048
  9. ALENDRONAT [Concomitant]
     Indication: OSTEOPOROSIS
     Route: 048
     Dates: start: 200806
  10. CALCICHEW D3 FORTE [Concomitant]
     Indication: OSTEOPOROSIS
     Route: 048

REACTIONS (2)
  - Cerebral infarction [Fatal]
  - Pyrexia [Unknown]
